FAERS Safety Report 8266938-2 (Version None)
Quarter: 2012Q2

REPORT INFORMATION
  Report Type: 
  Country: None (occurrence: None)
  Receive Date: 20120404
  Receipt Date: 20120404
  Transmission Date: 20120825
  Serious: Yes (Hospitalization)
  Sender: FDA-Public Use
  Company Number: None

PATIENT
  Age: 53 Year
  Sex: Female
  Weight: 76.1 kg

DRUGS (1)
  1. AMLODIPINE MALEATE/ BENAZEPRIL HYDROCHLORIDE [Suspect]
     Indication: HYPERTENSION
     Dosage: 20MG - 10MG DAILY PO CHRONIC
     Route: 048

REACTIONS (3)
  - PNEUMOTHORAX [None]
  - ANGIOEDEMA [None]
  - FALL [None]
